FAERS Safety Report 8348539-0 (Version None)
Quarter: 2012Q2

REPORT INFORMATION
  Report Type: 
  Country: None (occurrence: None)
  Receive Date: 20120509
  Receipt Date: 20120423
  Transmission Date: 20120825
  Serious: Yes (Death)
  Sender: FDA-Public Use
  Company Number: PHHY2011KR104006

PATIENT
  Sex: Male
  Weight: 58 kg

DRUGS (2)
  1. BLOOD TRANSFUSION, AUXILIARY PRODUCTS [Concomitant]
     Dosage: EVERY THREE WEEK
  2. EXJADE [Suspect]
     Indication: IRON OVERLOAD
     Dosage: 30 MG/ML, UNK
     Route: 048
     Dates: start: 20081127, end: 20090522

REACTIONS (1)
  - DEATH [None]
